FAERS Safety Report 8009178-4 (Version None)
Quarter: 2011Q4

REPORT INFORMATION
  Report Type: 
  Country: None (occurrence: None)
  Receive Date: 20111227
  Receipt Date: 20111218
  Transmission Date: 20120403
  Serious: No
  Sender: FDA-Public Use
  Company Number: US-B.I. PHARMACEUTICALS,INC./RIDGEFIELD-2011-BP-28329BP

PATIENT
  Age: 70 Year
  Sex: Male

DRUGS (4)
  1. PRADAXA [Suspect]
     Indication: ATRIAL FIBRILLATION
     Dosage: 300 MG
     Route: 048
     Dates: start: 20101001
  2. METOPROLOL SUCCINATE [Suspect]
  3. MEDICATION NOT FURTHER SPECIFIED [Concomitant]
     Indication: BLOOD PRESSURE ABNORMAL
  4. MEDICATION NOT FURTHER SPECIFIED [Concomitant]
     Indication: TYPE 2 DIABETES MELLITUS

REACTIONS (3)
  - CONSTIPATION [None]
  - ABDOMINAL PAIN UPPER [None]
  - HALLUCINATION, VISUAL [None]
